FAERS Safety Report 15839946 (Version 2)
Quarter: 2019Q1

REPORT INFORMATION
  Report Type: Spontaneous
  Country: CA (occurrence: CA)
  Receive Date: 20190117
  Receipt Date: 20190214
  Transmission Date: 20190417
  Serious: Yes (Death)
  Sender: FDA-Public Use
  Company Number: CA-ACTELION-A-US2019-184635

PATIENT
  Age: 79 Year

DRUGS (17)
  1. ALLOPURINOL. [Concomitant]
     Active Substance: ALLOPURINOL
  2. IRON [Concomitant]
     Active Substance: IRON
  3. ZYLOPRIN [Concomitant]
  4. TRACLEER [Suspect]
     Active Substance: BOSENTAN
     Indication: PULMONARY HYPERTENSION
     Dosage: 125 MG, BID
     Route: 048
     Dates: start: 20161202
  5. LUMIGAN [Concomitant]
     Active Substance: BIMATOPROST
  6. METOPROLOL. [Concomitant]
     Active Substance: METOPROLOL
  7. CALCIUM CARBONATE. [Concomitant]
     Active Substance: CALCIUM CARBONATE
  8. VITAMIN B12 [Concomitant]
     Active Substance: CYANOCOBALAMIN
  9. WARFARIN [Concomitant]
     Active Substance: WARFARIN
  10. ZAROXOLYN [Concomitant]
     Active Substance: METOLAZONE
  11. DORZOLAMIDE [Concomitant]
     Active Substance: DORZOLAMIDE
  12. FUROSEMIDE. [Concomitant]
     Active Substance: FUROSEMIDE
  13. OMEPRAZOLE. [Concomitant]
     Active Substance: OMEPRAZOLE
  14. ROSUVASTATIN. [Concomitant]
     Active Substance: ROSUVASTATIN
  15. VITALUX [Concomitant]
     Active Substance: MINERALS\VITAMINS
  16. DUTASTERIDE. [Concomitant]
     Active Substance: DUTASTERIDE
  17. METOLAZONE. [Concomitant]
     Active Substance: METOLAZONE

REACTIONS (1)
  - Death [Fatal]

NARRATIVE: CASE EVENT DATE: 20181230
